FAERS Safety Report 23716525 (Version 1)
Quarter: 2024Q2

REPORT INFORMATION
  Report Type: Spontaneous
  Country: US (occurrence: US)
  Receive Date: 20240408
  Receipt Date: 20240408
  Transmission Date: 20240716
  Serious: Yes (Hospitalization)
  Sender: FDA-Public Use
  Company Number: US-IMMUNOCORE, LTD-2024-IMC-002451

PATIENT
  Sex: Male

DRUGS (1)
  1. KIMMTRAK [Suspect]
     Active Substance: TEBENTAFUSP-TEBN
     Indication: Product used for unknown indication
     Dosage: UNK
     Dates: start: 20240328

REACTIONS (4)
  - Oxygen saturation decreased [Unknown]
  - Renal disorder [Unknown]
  - Blood bilirubin increased [Unknown]
  - Blood creatinine increased [Unknown]
